FAERS Safety Report 8143662-8 (Version None)
Quarter: 2012Q1

REPORT INFORMATION
  Report Type: 
  Country: None (occurrence: None)
  Receive Date: 20120103
  Receipt Date: 20110929
  Transmission Date: 20120608
  Serious: No
  Sender: FDA-Public Use
  Company Number: AE-2011-001695

PATIENT
  Age: 49 Year
  Sex: Female

DRUGS (6)
  1. INCIVEK [Suspect]
     Dosage: (3 IN 1 D), ORAL
     Route: 048
     Dates: start: 20110809
  2. PEGASYS [Concomitant]
  3. LITHIUM CARBONATE [Concomitant]
  4. LAMOTRIGINE [Concomitant]
  5. VALIUM [Concomitant]
  6. RIBAVIRIN [Concomitant]

REACTIONS (1)
  - DROOLING [None]
